FAERS Safety Report 10245898 (Version 2)
Quarter: 2014Q2

REPORT INFORMATION
  Report Type: Spontaneous
  Country: US (occurrence: US)
  Receive Date: 20140619
  Receipt Date: 20140627
  Transmission Date: 20141212
  Serious: Yes (Other)
  Sender: FDA-Public Use
  Company Number: US-AMGEN INC.-USASP2014044576

PATIENT
  Sex: Female

DRUGS (1)
  1. PROLIA [Suspect]
     Indication: OSTEOPOROSIS POSTMENOPAUSAL
     Dosage: 60 MG, Q6MO
     Route: 065
     Dates: start: 201302

REACTIONS (6)
  - Renal impairment [Unknown]
  - Tuberculosis [Unknown]
  - Aspergillus infection [Unknown]
  - Dyspnoea [Not Recovered/Not Resolved]
  - Atypical mycobacterial infection [Unknown]
  - Blindness unilateral [Unknown]
